FAERS Safety Report 18932220 (Version 6)
Quarter: 2021Q3

REPORT INFORMATION
  Report Type: Report from Study
  Country: None (occurrence: JP)
  Receive Date: 20210223
  Receipt Date: 20210924
  Transmission Date: 20211014
  Serious: No
  Sender: FDA-Public Use
  Company Number: JP-ABBVIE-19S-087-2758596-00

PATIENT
  Age: 47 Year
  Sex: Male
  Weight: 61 kg

DRUGS (10)
  1. ROTIGOTINE [Concomitant]
     Active Substance: ROTIGOTINE
     Indication: PARKINSON^S DISEASE
     Route: 062
  2. MECOBALAMIN [Concomitant]
     Active Substance: METHYLCOBALAMIN
     Indication: PROPHYLAXIS
     Route: 048
     Dates: start: 20190409
  3. DUODOPA [Suspect]
     Active Substance: CARBIDOPA\LEVODOPA
     Indication: PARKINSON^S DISEASE
     Dosage: MD: 6.4 ML?CD: 3.3 ML/HR X 14 HRS?ED: 2 ML/UNIT X 2
     Route: 050
     Dates: start: 20190226, end: 20200428
  4. TRIHEXYPHENIDYL HYDROCHLORIDE. [Concomitant]
     Active Substance: TRIHEXYPHENIDYL HYDROCHLORIDE
     Indication: PARKINSON^S DISEASE
     Route: 048
  5. CARBIDOPA MONOHYDRATE;LEVODOPA [Concomitant]
     Indication: PARKINSON^S DISEASE
     Dosage: CARBIDOPA HYDRATE AND LEVODOPA
     Route: 048
     Dates: start: 20200428, end: 20200501
  6. AMANTADINE HYDROCHLORIDE. [Concomitant]
     Active Substance: AMANTADINE HYDROCHLORIDE
     Indication: PARKINSON^S DISEASE
     Route: 048
  7. FOLIC ACID. [Concomitant]
     Active Substance: FOLIC ACID
     Indication: PROPHYLAXIS
     Route: 048
     Dates: start: 20190409
  8. DUODOPA [Suspect]
     Active Substance: CARBIDOPA\LEVODOPA
     Dosage: MD: 6.4 ML?CD: 3.3 ML/HR X 14 HRS?ED: 2 ML/UNIT X 2
     Route: 050
     Dates: start: 20200502, end: 202106
  9. DUODOPA [Suspect]
     Active Substance: CARBIDOPA\LEVODOPA
     Dosage: MD: 6.4 ML?CD: 4.3 ML/HR X 14 HRS?ED: 3.2 ML/UNIT X 2
     Route: 050
     Dates: start: 20210629
  10. CLONAZEPAM. [Concomitant]
     Active Substance: CLONAZEPAM
     Indication: PRODUCT USED FOR UNKNOWN INDICATION
     Route: 048

REACTIONS (2)
  - Expired product administered [Unknown]
  - Fall [Recovered/Resolved]

NARRATIVE: CASE EVENT DATE: 20200428
